FAERS Safety Report 16863279 (Version 2)
Quarter: 2019Q4

REPORT INFORMATION
  Report Type: Spontaneous
  Country: CN (occurrence: CN)
  Receive Date: 20190927
  Receipt Date: 20191001
  Transmission Date: 20200122
  Serious: Yes (Other)
  Sender: FDA-Public Use
  Company Number: CN-ASTRAZENECA-2019SF34284

PATIENT
  Sex: Female
  Weight: 55 kg

DRUGS (2)
  1. IRESSA [Suspect]
     Active Substance: GEFITINIB
     Indication: NON-SMALL CELL LUNG CANCER
     Route: 048
     Dates: start: 20190501, end: 20190919
  2. IRESSA [Suspect]
     Active Substance: GEFITINIB
     Indication: NON-SMALL CELL LUNG CANCER
     Route: 048

REACTIONS (11)
  - Productive cough [Not Recovered/Not Resolved]
  - Haematemesis [Recovered/Resolved]
  - Dyspnoea [Recovering/Resolving]
  - Acne [Recovered/Resolved]
  - Tongue exfoliation [Unknown]
  - Epistaxis [Recovered/Resolved]
  - Skin exfoliation [Not Recovered/Not Resolved]
  - Nasopharyngitis [Recovering/Resolving]
  - Glossodynia [Unknown]
  - Pain in extremity [Unknown]
  - Muscular weakness [Not Recovered/Not Resolved]
